FAERS Safety Report 18556988 (Version 1)
Quarter: 2020Q4

REPORT INFORMATION
  Report Type: Report from Study
  Country: MX (occurrence: MX)
  Receive Date: 20201129
  Receipt Date: 20201129
  Transmission Date: 20210114
  Serious: Yes (Other)
  Sender: FDA-Public Use
  Company Number: NVSC2020MX316602

PATIENT
  Age: 68 Year
  Sex: Male
  Weight: 76 kg

DRUGS (1)
  1. TASIGNA [Suspect]
     Active Substance: NILOTINIB
     Indication: CHRONIC MYELOID LEUKAEMIA
     Dosage: 400 MG, Q12H
     Route: 048
     Dates: start: 2018

REACTIONS (4)
  - Hepatitis [Recovering/Resolving]
  - Pruritus [Recovering/Resolving]
  - Splenitis [Recovering/Resolving]
  - Abdominal mass [Recovering/Resolving]

NARRATIVE: CASE EVENT DATE: 202011
